FAERS Safety Report 5170197-7 (Version None)
Quarter: 2006Q4

REPORT INFORMATION
  Report Type: 
  Country: None (occurrence: None)
  Receive Date: 20061212
  Receipt Date: 20061129
  Transmission Date: 20070319
  Serious: Yes (Hospitalization)
  Sender: FDA-Public Use
  Company Number: US-KINGPHARMUSA00001-K200601529

PATIENT
  Sex: Female

DRUGS (1)
  1. FLORINEF [Suspect]
     Indication: ORTHOSTATIC HYPOTENSION
     Route: 048

REACTIONS (1)
  - INTESTINAL OBSTRUCTION [None]
